FAERS Safety Report 6411177-0 (Version None)
Quarter: 2009Q4

REPORT INFORMATION
  Report Type: 
  Country: None (occurrence: None)
  Receive Date: 20091022
  Receipt Date: 20091012
  Transmission Date: 20100525
  Serious: Yes (Hospitalization, Other)
  Sender: FDA-Public Use
  Company Number: DE-PFIZER INC-2009260921

PATIENT
  Age: 43 Year

DRUGS (9)
  1. ZELDOX [Suspect]
     Indication: MOOD ALTERED
     Dosage: UNK
     Route: 048
     Dates: start: 20090721, end: 20090831
  2. ZELDOX [Interacting]
     Indication: SCHIZOPHRENIA, PARANOID TYPE
  3. SEROQUEL [Interacting]
     Indication: PARANOIA
     Dosage: UNK
     Route: 048
     Dates: start: 20090704, end: 20090907
  4. SEROQUEL [Interacting]
     Indication: HALLUCINATION
  5. DIAZEPAM [Concomitant]
     Indication: RESTLESSNESS
     Dosage: 25MG/DAY
     Route: 048
     Dates: start: 20090624, end: 20090819
  6. DIAZEPAM [Concomitant]
     Indication: AGITATION
  7. LYRICA [Concomitant]
     Indication: CONVULSION PROPHYLAXIS
     Dosage: 225MG/DAY
     Route: 048
     Dates: start: 20090722, end: 20090830
  8. LYRICA [Concomitant]
     Indication: RESTLESSNESS
  9. MINISISTON [Concomitant]
     Indication: CONTRACEPTION
     Dosage: UNK
     Route: 048
     Dates: start: 20090821

REACTIONS (3)
  - DRUG INTERACTION [None]
  - EAR DISCOMFORT [None]
  - HEARING IMPAIRED [None]
